FAERS Safety Report 9899070 (Version 2)
Quarter: 2014Q1

REPORT INFORMATION
  Report Type: Spontaneous
  Country: US (occurrence: US)
  Receive Date: 20140214
  Receipt Date: 20140214
  Transmission Date: 20141002
  Serious: No
  Sender: FDA-Public Use
  Company Number: US-GILEAD-2011-0045405

PATIENT
  Age: 73 Year
  Sex: Female
  Weight: 60.77 kg

DRUGS (20)
  1. LETAIRIS [Suspect]
     Indication: PULMONARY HYPERTENSION
     Dosage: 10 MG, UNK
     Route: 048
     Dates: start: 20110420
  2. ASPIRIN [Concomitant]
  3. ATENOLOL [Concomitant]
  4. BROVANA [Concomitant]
  5. CALCIUM CARBONATE [Concomitant]
  6. CHERATUSSIN AC [Concomitant]
  7. CLONIDINE [Concomitant]
  8. FLOVENT HFA [Concomitant]
  9. HYDROXYCHLOROQUINE [Concomitant]
  10. LEVOXYL [Concomitant]
  11. NORVASC [Concomitant]
  12. PATANASE [Concomitant]
  13. PRANDIN                            /01393601/ [Concomitant]
  14. PRILOSEC                           /00661201/ [Concomitant]
  15. PROLIA [Concomitant]
  16. PULMICORT [Concomitant]
  17. SIMVASTATIN [Concomitant]
  18. XANAX [Concomitant]
  19. SPIRIVA HANDIHALER [Concomitant]
  20. OXYGEN [Concomitant]

REACTIONS (2)
  - Local swelling [Not Recovered/Not Resolved]
  - Dyspnoea [Not Recovered/Not Resolved]
